FAERS Safety Report 9349142 (Version 3)
Quarter: 2013Q3

REPORT INFORMATION
  Report Type: Report from Study
  Country: DE (occurrence: DE)
  Receive Date: 20130614
  Receipt Date: 20130925
  Transmission Date: 20140515
  Serious: Yes (Hospitalization, Other)
  Sender: FDA-Public Use
  Company Number: DE-INCYTE CORPORATION-2013IN001221

PATIENT
  Age: 79 Year
  Sex: Male
  Weight: 72.6 kg

DRUGS (10)
  1. INCB018424 [Suspect]
     Indication: MYELOFIBROSIS
     Dosage: 30 MG, QD
     Route: 048
     Dates: start: 20130305, end: 20130320
  2. INCB018424 [Suspect]
     Dosage: 30 MG, PER DAY
     Route: 048
     Dates: start: 20130330
  3. ASS [Concomitant]
     Dosage: 100 MG, UNK
  4. CLOPIDOGREL [Concomitant]
     Dosage: UNK
  5. METOPROLOL [Concomitant]
     Dosage: UNK
  6. FELODIPINE [Concomitant]
     Dosage: UNK
  7. PRAVASTATIN [Concomitant]
     Dosage: UNK
  8. PANTOPRAZOLE [Concomitant]
     Dosage: UNK
  9. SPIRIVA [Concomitant]
     Dosage: UNK
  10. BECLOMETHASONE [Concomitant]
     Dosage: UNK

REACTIONS (4)
  - Acute myocardial infarction [Unknown]
  - Pulmonary oedema [Recovered/Resolved]
  - Cardiac failure congestive [Unknown]
  - Cardiac failure [Recovered/Resolved]
